FAERS Safety Report 4566010-9 (Version None)
Quarter: 2005Q1

REPORT INFORMATION
  Report Type: 
  Country: None (occurrence: None)
  Receive Date: 20050128
  Receipt Date: 20050119
  Transmission Date: 20050727
  Serious: Yes (Hospitalization)
  Sender: FDA-Public Use
  Company Number: 2004-11-0850

PATIENT
  Age: 59 Year
  Sex: Male

DRUGS (7)
  1. INTRON A [Suspect]
     Indication: RENAL CELL CARCINOMA STAGE UNSPECIFIED
     Dosage: SEE IMAGE
     Route: 058
     Dates: start: 20040903, end: 20041014
  2. INTRON A [Suspect]
     Indication: RENAL CELL CARCINOMA STAGE UNSPECIFIED
     Dosage: SEE IMAGE
     Route: 058
     Dates: start: 20041027
  3. GLICLAZIDE [Concomitant]
  4. DOMPERIDONE [Concomitant]
  5. DEXAMETHASONE [Concomitant]
  6. PANTOPRAZOLE SODIUM [Concomitant]
  7. ACETAMINOPHEN [Concomitant]

REACTIONS (3)
  - MONOPLEGIA [None]
  - SPINAL CORD COMPRESSION [None]
  - VISUAL DISTURBANCE [None]
